FAERS Safety Report 11894571 (Version 1)
Quarter: 2016Q1

REPORT INFORMATION
  Report Type: Spontaneous
  Country: US (occurrence: None)
  Receive Date: 20160106
  Receipt Date: 20160106
  Transmission Date: 20160526
  Serious: Yes (Other)
  Sender: FDA-Public Use
  Company Number: None

PATIENT
  Sex: Female
  Weight: 81.19 kg

DRUGS (6)
  1. BOOST [Concomitant]
  2. ALKA SELTZER [Concomitant]
     Active Substance: ANHYDROUS CITRIC ACID\ASPIRIN\SODIUM BICARBONATE
  3. BAYER ASPIRIN [Concomitant]
     Active Substance: ASPIRIN
  4. XARELTO [Suspect]
     Active Substance: RIVAROXABAN
     Indication: THROMBOSIS
     Route: 048
     Dates: start: 201306, end: 201402
  5. COREG [Concomitant]
     Active Substance: CARVEDILOL
  6. ONE A DAY VITAMINS [Concomitant]

REACTIONS (4)
  - Nervous system disorder [None]
  - Neuropathy peripheral [None]
  - Deep vein thrombosis [None]
  - Pulmonary embolism [None]
